FAERS Safety Report 8469679-1 (Version None)
Quarter: 2012Q2

REPORT INFORMATION
  Report Type: 
  Country: None (occurrence: None)
  Receive Date: 20120626
  Receipt Date: 20120622
  Transmission Date: 20120825
  Serious: Yes (Hospitalization)
  Sender: FDA-Public Use
  Company Number: US-ROCHE-1081507

PATIENT
  Sex: Female

DRUGS (6)
  1. EPIPEN [Concomitant]
     Indication: HYPERSENSITIVITY
  2. PREDNISONE TAB [Concomitant]
     Indication: ASTHMA
     Route: 048
  3. VICODIN [Concomitant]
     Indication: FIBROMYALGIA
     Route: 048
  4. ZOLOFT [Concomitant]
     Indication: FIBROMYALGIA
     Route: 048
  5. ZOVIRAX [Concomitant]
     Indication: VISUAL IMPAIRMENT
     Route: 048
  6. XOLAIR [Suspect]
     Indication: ASTHMA

REACTIONS (2)
  - ASTHMA [None]
  - UPPER RESPIRATORY TRACT INFECTION [None]
